FAERS Safety Report 19809952 (Version 1)
Quarter: 2021Q3

REPORT INFORMATION
  Report Type: Spontaneous
  Country: US (occurrence: US)
  Receive Date: 20210909
  Receipt Date: 20210909
  Transmission Date: 20211014
  Serious: Yes (Hospitalization)
  Sender: FDA-Public Use
  Company Number: None

PATIENT
  Age: 75 Year
  Sex: Male

DRUGS (1)
  1. FORTEO [Suspect]
     Active Substance: TERIPARATIDE
     Indication: SENILE OSTEOPOROSIS
     Route: 058
     Dates: start: 20210812

REACTIONS (4)
  - Arterial stent insertion [None]
  - Blood disorder [None]
  - Therapy interrupted [None]
  - Streptococcal infection [None]

NARRATIVE: CASE EVENT DATE: 20210825
